FAERS Safety Report 6197527-1 (Version None)
Quarter: 2009Q2

REPORT INFORMATION
  Report Type: 
  Country: None (occurrence: None)
  Receive Date: 20090521
  Receipt Date: 20090514
  Transmission Date: 20091009
  Serious: Yes (Hospitalization)
  Sender: FDA-Public Use
  Company Number: US-BIOGENIDEC-2007BI021617

PATIENT
  Age: 56 Year
  Sex: Female

DRUGS (3)
  1. AVONEX [Suspect]
     Indication: MULTIPLE SCLEROSIS
     Route: 030
     Dates: start: 19970101, end: 19990101
  2. AVONEX [Suspect]
     Route: 030
     Dates: start: 20070326, end: 20080301
  3. AVONEX [Suspect]
     Route: 030
     Dates: start: 20080609

REACTIONS (4)
  - ATRIAL FIBRILLATION [None]
  - ATRIAL FLUTTER [None]
  - MYOCARDIAL INFARCTION [None]
  - POST PROCEDURAL COMPLICATION [None]
